FAERS Safety Report 16460989 (Version 1)
Quarter: 2019Q2

REPORT INFORMATION
  Report Type: Spontaneous
  Country: US (occurrence: US)
  Receive Date: 20190621
  Receipt Date: 20190621
  Transmission Date: 20190711
  Serious: Yes (Other)
  Sender: FDA-Public Use
  Company Number: US-ALKEM LABORATORIES LIMITED-US-ALKEM-2019-03715

PATIENT
  Age: 71 Year
  Sex: Male

DRUGS (2)
  1. LEVAMISOLE [Concomitant]
     Active Substance: LEVAMISOLE
     Indication: PRODUCT USED FOR UNKNOWN INDICATION
     Dosage: UNK
     Route: 065
  2. CAPECITABINE. [Suspect]
     Active Substance: CAPECITABINE
     Indication: CHEMOTHERAPY
     Dosage: 450 MILLIGRAM/SQ. METER
     Route: 042

REACTIONS (3)
  - Neuropathy peripheral [Unknown]
  - Neurotoxicity [Unknown]
  - Pain in extremity [Unknown]
